FAERS Safety Report 6110388-1 (Version None)
Quarter: 2009Q1

REPORT INFORMATION
  Report Type: 
  Country: None (occurrence: None)
  Receive Date: 20090309
  Receipt Date: 20090309
  Transmission Date: 20090719
  Serious: Yes (Other)
  Sender: FDA-Public Use
  Company Number: None

PATIENT
  Sex: Female
  Weight: 47.6277 kg

DRUGS (1)
  1. SOLODYN [Suspect]
     Indication: ACNE
     Dosage: 1 DAY PO
     Route: 048
     Dates: start: 20081201, end: 20090307

REACTIONS (16)
  - ACTIVITIES OF DAILY LIVING IMPAIRED [None]
  - AMNESIA [None]
  - CONSTIPATION [None]
  - DISSOCIATION [None]
  - DISTURBANCE IN ATTENTION [None]
  - EPISTAXIS [None]
  - FATIGUE [None]
  - HEADACHE [None]
  - HYPERSOMNIA [None]
  - MOVEMENT DISORDER [None]
  - MUSCULOSKELETAL PAIN [None]
  - NECK PAIN [None]
  - NIGHT SWEATS [None]
  - PALLOR [None]
  - VISUAL IMPAIRMENT [None]
  - WEIGHT DECREASED [None]
